FAERS Safety Report 16113875 (Version 1)
Quarter: 2019Q1

REPORT INFORMATION
  Report Type: Spontaneous
  Country: None (occurrence: US)
  Receive Date: 20190325
  Receipt Date: 20190325
  Transmission Date: 20190418
  Serious: No
  Sender: FDA-Public Use
  Company Number: US-ALLERGAN-1819609US

PATIENT
  Age: 69 Year
  Sex: Female

DRUGS (2)
  1. ASPIRIN. [Concomitant]
     Active Substance: ASPIRIN
     Dosage: 810 MG, UNK
     Route: 048
  2. LATISSE [Suspect]
     Active Substance: BIMATOPROST
     Indication: MADAROSIS
     Dosage: UNK
     Route: 061
     Dates: start: 20180207

REACTIONS (4)
  - Erythema of eyelid [Recovered/Resolved]
  - Eyelids pruritus [Recovered/Resolved]
  - Swelling of eyelid [Recovered/Resolved]
  - Inappropriate schedule of product administration [Unknown]

NARRATIVE: CASE EVENT DATE: 20180207
